FAERS Safety Report 18739785 (Version 1)
Quarter: 2021Q1

REPORT INFORMATION
  Report Type: Spontaneous
  Country: US (occurrence: US)
  Receive Date: 20210113
  Receipt Date: 20210113
  Transmission Date: 20210419
  Serious: Yes (Hospitalization)
  Sender: FDA-Public Use
  Company Number: None

PATIENT
  Age: 80 Year
  Sex: Female

DRUGS (5)
  1. CARVEDILOL. [Concomitant]
     Active Substance: CARVEDILOL
  2. DOFETILIDE. [Suspect]
     Active Substance: DOFETILIDE
     Indication: ATRIAL FIBRILLATION
     Route: 048
     Dates: start: 20180124
  3. XARELTO [Concomitant]
     Active Substance: RIVAROXABAN
  4. OLOPATADINE. [Concomitant]
     Active Substance: OLOPATADINE
  5. TRAMADOL HCL [Concomitant]
     Active Substance: TRAMADOL HYDROCHLORIDE

REACTIONS (4)
  - Fall [None]
  - Therapy interrupted [None]
  - Urinary tract infection [None]
  - Upper limb fracture [None]

NARRATIVE: CASE EVENT DATE: 20201208
